FAERS Safety Report 10687465 (Version 1)
Quarter: 2014Q4

REPORT INFORMATION
  Report Type: Spontaneous
  Country: US (occurrence: None)
  Receive Date: 20141231
  Receipt Date: 20141231
  Transmission Date: 20150529
  Serious: Yes (Other)
  Sender: FDA-Public Use
  Company Number: None

PATIENT
  Age: 27 Year
  Sex: Female

DRUGS (1)
  1. VIVITROL [Suspect]
     Active Substance: NALTREXONE
     Indication: ALCOHOL POISONING
     Route: 030
     Dates: start: 20141112, end: 201412

REACTIONS (8)
  - Toothache [None]
  - Injection site swelling [None]
  - Depression [None]
  - Hypersensitivity [None]
  - Back pain [None]
  - Headache [None]
  - Vomiting [None]
  - Dysgeusia [None]

NARRATIVE: CASE EVENT DATE: 20141212
